FAERS Safety Report 8154442-1 (Version None)
Quarter: 2012Q1

REPORT INFORMATION
  Report Type: 
  Country: None (occurrence: None)
  Receive Date: 20120221
  Receipt Date: 20120214
  Transmission Date: 20120608
  Serious: Yes (Other)
  Sender: FDA-Public Use
  Company Number: US-BAYER-200940317NA

PATIENT
  Age: 63 Year
  Sex: Male
  Weight: 102.4 kg

DRUGS (38)
  1. PANTOPRAZOLE [Concomitant]
     Dosage: 40 MG, UNK
     Route: 042
     Dates: start: 20060327
  2. CALCIUM CARBONATE [Concomitant]
     Dosage: 1000 MG, UNK
     Route: 048
     Dates: start: 20060328
  3. LOPRESSOR [Concomitant]
     Dosage: 50 MG, UNK
     Route: 048
     Dates: start: 20060327
  4. SUFENTANIL CITRATE [Concomitant]
     Dosage: 75 MCG
     Route: 042
     Dates: start: 20060406, end: 20060406
  5. LASIX [Concomitant]
     Indication: CARDIAC FAILURE CONGESTIVE
     Dosage: 100 MG, UNK
     Route: 042
     Dates: start: 20060327
  6. HEPARIN [Concomitant]
     Dosage: 25000 U IN D5W
     Route: 042
     Dates: start: 20060327
  7. TRIAMTERENE AND HYDROCHLOROTHIAZIDE [Concomitant]
     Dosage: 37.5/25 MG
     Route: 048
     Dates: start: 20060118
  8. RED BLOOD CELLS [Concomitant]
     Dosage: 2 UNITS
     Route: 042
     Dates: start: 20060410
  9. HEPARIN [Concomitant]
     Dosage: 25000 U, UNK
     Route: 042
     Dates: start: 20060406, end: 20060406
  10. METFORMIN HCL [Concomitant]
     Dosage: 1000
     Route: 048
     Dates: start: 20060117
  11. AVANDIA [Concomitant]
     Dosage: 4 MG, UNK
     Route: 048
     Dates: start: 20060118
  12. VYTORIN [Concomitant]
     Dosage: 10/80 MG
     Route: 048
     Dates: start: 20060117
  13. ETOMIDATE [Concomitant]
     Dosage: 20 MG, UNK
     Route: 042
     Dates: start: 20060406, end: 20060406
  14. ROCURONIUM BROMIDE [Concomitant]
     Dosage: 100 MG, UNK
     Route: 042
     Dates: start: 20060406, end: 20060406
  15. MANNITOL [Concomitant]
     Dosage: 12.5 CC
     Route: 042
     Dates: start: 20060406, end: 20060406
  16. ALBUMIN (HUMAN) [Concomitant]
     Dosage: 150 CC
     Route: 042
     Dates: start: 20060406, end: 20060406
  17. PLATELETS [Concomitant]
     Dosage: 1000 ML, UNK
  18. NITROGLYCERIN [Concomitant]
     Dosage: 50 MG IN D5W
     Route: 042
     Dates: start: 20060327
  19. MORPHINE [Concomitant]
     Dosage: 2 MG, UNK
     Route: 042
     Dates: start: 20060326
  20. ARICEPT [Concomitant]
  21. SODIUM BICARBONATE [Concomitant]
     Dosage: 50 CC
     Route: 042
     Dates: start: 20060406, end: 20060406
  22. AZITHROMYCIN [Concomitant]
     Indication: PNEUMONIA
     Dosage: 500 MG, UNK
     Route: 042
     Dates: start: 20060327, end: 20060327
  23. ONDANSETRON [Concomitant]
     Dosage: 1 MG, UNK
     Route: 042
     Dates: start: 20060327
  24. GEMFIBROZIL [Concomitant]
     Dosage: 600 MG, UNK
     Route: 048
     Dates: start: 20060117
  25. LIDOCAINE [Concomitant]
     Dosage: 40 MG, UNK
     Route: 042
     Dates: start: 20060406, end: 20060406
  26. RED BLOOD CELLS [Concomitant]
     Dosage: 2 U, UNK
     Route: 042
     Dates: start: 20060409
  27. CARDIOPLEGIA [Concomitant]
     Dosage: UNK
     Dates: start: 20060406
  28. BACITRACIN [Concomitant]
     Dosage: 50,000 IRRIGATION
     Dates: start: 20060406, end: 20060406
  29. RED BLOOD CELLS [Concomitant]
     Dosage: 2 U, UNK
     Route: 042
     Dates: start: 20060408
  30. LIPITOR [Concomitant]
     Indication: PRODUCT USED FOR UNKNOWN INDICATION
     Dosage: 40 MG, UNK
     Route: 048
  31. CEFTRIAXONE [Concomitant]
     Indication: PNEUMONIA
     Dosage: 1 G, UNK
     Route: 042
     Dates: start: 20060327, end: 20060327
  32. ARANESP [Concomitant]
     Indication: ANAEMIA
     Dosage: 300 MCG
     Dates: start: 20060303
  33. TRASYLOL [Suspect]
     Indication: CORONARY ARTERY BYPASS
     Dosage: 100 ML PUMP PRIME LOADING DOSE
     Route: 042
     Dates: start: 20060406
  34. PLAVIX [Concomitant]
     Dosage: 75 MG, UNK
     Route: 048
  35. CARDIZEM [Concomitant]
     Dosage: 5 MG, UNK
     Route: 042
     Dates: start: 20060326
  36. CEFUROXIME [Concomitant]
     Dosage: 1.5 G, UNK
     Route: 042
     Dates: start: 20060406
  37. CALCIUM CHLORIDE [Concomitant]
     Dosage: 3 G, UNK
     Route: 042
     Dates: start: 20060406, end: 20060406
  38. RED BLOOD CELLS [Concomitant]
     Dosage: 2 U, UNK
     Route: 042
     Dates: start: 20060406

REACTIONS (12)
  - RENAL IMPAIRMENT [None]
  - STRESS [None]
  - UNEVALUABLE EVENT [None]
  - PSYCHOLOGICAL TRAUMA [None]
  - ANXIETY [None]
  - EMOTIONAL DISTRESS [None]
  - RENAL INJURY [None]
  - FEAR [None]
  - RENAL FAILURE [None]
  - INJURY [None]
  - PAIN [None]
  - ANHEDONIA [None]
